FAERS Safety Report 19180535 (Version 2)
Quarter: 2021Q2

REPORT INFORMATION
  Report Type: Report from Study
  Country: IT (occurrence: IT)
  Receive Date: 20210426
  Receipt Date: 20210430
  Transmission Date: 20210717
  Serious: Yes (Death, Life-Threatening)
  Sender: FDA-Public Use
  Company Number: IT-PFIZER INC-2021437510

PATIENT
  Age: 53 Year
  Sex: Female

DRUGS (3)
  1. GEMTUZUMAB OZOGAMICIN [Suspect]
     Active Substance: GEMTUZUMAB OZOGAMICIN
     Indication: ACUTE MYELOID LEUKAEMIA
     Dosage: 3 MG/M2, CYCLIC (FLAT DOSE CAPPED AT 5 MG), BY I.V. INFUSION OVER 2 HOURS ON DAY 1, 4, 7
     Route: 042
     Dates: start: 20210322, end: 20210328
  2. CYTARABINE. [Suspect]
     Active Substance: CYTARABINE
     Indication: ACUTE MYELOID LEUKAEMIA
     Dosage: 200 MG/M2, CYCLIC (GIVEN AS A DAILY IV CONTINUOUS INFUSION FOR 7 DAYS)
     Route: 042
     Dates: start: 20210322, end: 20210328
  3. DAUNORUBICIN HCL [Suspect]
     Active Substance: DAUNORUBICIN HYDROCHLORIDE
     Indication: ACUTE MYELOID LEUKAEMIA
     Dosage: 60 MG/M2, CYCLIC DAILY VIA IV INFUSION OVER 1 HOUR ON DAYS 1, 2, 3)
     Route: 042
     Dates: start: 20210322, end: 20210324

REACTIONS (2)
  - Proctitis [Fatal]
  - Septic shock [Fatal]

NARRATIVE: CASE EVENT DATE: 20210418
